FAERS Safety Report 22227361 (Version 2)
Quarter: 2023Q2

REPORT INFORMATION
  Report Type: Spontaneous
  Country: US (occurrence: None)
  Receive Date: 20230419
  Receipt Date: 20230510
  Transmission Date: 20230721
  Serious: No
  Sender: FDA-Public Use
  Company Number: 2023A072823

PATIENT

DRUGS (1)
  1. SYMBICORT [Suspect]
     Active Substance: BUDESONIDE\FORMOTEROL FUMARATE DIHYDRATE
     Indication: Asthma
     Dosage: 2 PUFFS, TWO TIMES A DAY
     Route: 055

REACTIONS (8)
  - Dyspnoea [Unknown]
  - Loss of consciousness [Unknown]
  - Anxiety [Unknown]
  - Product dose omission issue [Unknown]
  - Drug ineffective [Unknown]
  - Underdose [Unknown]
  - Intentional product misuse [Unknown]
  - Product use complaint [Unknown]
